FAERS Safety Report 19926890 (Version 2)
Quarter: 2021Q4

REPORT INFORMATION
  Report Type: Spontaneous
  Country: US (occurrence: US)
  Receive Date: 20211006
  Receipt Date: 20211020
  Transmission Date: 20220304
  Serious: Yes (Other)
  Sender: FDA-Public Use
  Company Number: US-PRINSTON PHARMACEUTICAL INC.-2021PRN00345

PATIENT
  Age: 64 Year
  Sex: Female
  Weight: 58.05 kg

DRUGS (8)
  1. LISINOPRIL [Suspect]
     Active Substance: LISINOPRIL
     Indication: Hypertension
     Dosage: 40 MG, 1X/DAY IN THE MORNING
     Route: 048
     Dates: start: 2014, end: 2021
  2. LISINOPRIL [Suspect]
     Active Substance: LISINOPRIL
     Dosage: 20 MG, 1X/DAY AT NIGHT
     Route: 048
     Dates: start: 2014, end: 2021
  3. LISINOPRIL [Suspect]
     Active Substance: LISINOPRIL
     Dosage: 40 MG, 1X/DAY IN THE MORNING
     Route: 048
     Dates: start: 2021
  4. LISINOPRIL [Suspect]
     Active Substance: LISINOPRIL
     Dosage: 20 MG, 1X/DAY AT NIGHT
     Route: 048
     Dates: start: 2021
  5. LISINOPRIL [Suspect]
     Active Substance: LISINOPRIL
     Indication: Hypertension
     Dosage: 40 MG, 1X/DAY IN THE MORNING
     Route: 048
     Dates: start: 2021, end: 2021
  6. LISINOPRIL [Suspect]
     Active Substance: LISINOPRIL
     Dosage: 20 MG, 1X/DAY AT NIGHT
     Route: 048
     Dates: start: 2021, end: 2021
  7. ZITHROMAX [Suspect]
     Active Substance: AZITHROMYCIN DIHYDRATE
     Dosage: UNK
     Dates: end: 20210824
  8. PROPRANOLOL [Suspect]
     Active Substance: PROPRANOLOL HYDROCHLORIDE

REACTIONS (10)
  - COVID-19 pneumonia [Recovered/Resolved]
  - COVID-19 [Recovered/Resolved]
  - Hypersensitivity [Unknown]
  - Skin irritation [Recovering/Resolving]
  - Paraesthesia [Recovering/Resolving]
  - Skin burning sensation [Recovering/Resolving]
  - Urticaria [Recovered/Resolved]
  - Erythema [Recovering/Resolving]
  - Pruritus [Recovering/Resolving]
  - Rash [Recovered/Resolved]

NARRATIVE: CASE EVENT DATE: 20210101
